FAERS Safety Report 10163566 (Version 1)
Quarter: 2014Q2

REPORT INFORMATION
  Report Type: Spontaneous
  Country: KR (occurrence: KR)
  Receive Date: 20140509
  Receipt Date: 20140509
  Transmission Date: 20141212
  Serious: Yes (Death, Other)
  Sender: FDA-Public Use
  Company Number: KR-PFIZER INC-2014125333

PATIENT
  Age: 78 Year
  Sex: Female

DRUGS (1)
  1. SUNITINIB MALATE [Suspect]
     Indication: GASTROINTESTINAL STROMAL TUMOUR
     Dosage: 50 MG, CYCLIC (50 MG, DAILY)
     Route: 048

REACTIONS (3)
  - Intestinal perforation [Fatal]
  - Peritonitis [Fatal]
  - Neutropenia [Not Recovered/Not Resolved]
